FAERS Safety Report 8303963-7 (Version None)
Quarter: 2012Q2

REPORT INFORMATION
  Report Type: 
  Country: None (occurrence: None)
  Receive Date: 20120423
  Receipt Date: 20120419
  Transmission Date: 20120825
  Serious: Yes (Death, Hospitalization, Other)
  Sender: FDA-Public Use
  Company Number: PHHY2011JP55866

PATIENT
  Sex: Female
  Weight: 44 kg

DRUGS (11)
  1. CEFAZOLIN SODIUM [Concomitant]
     Dosage: 2 G, UNK
     Route: 048
  2. HABEKACIN [Concomitant]
  3. TEGRETOL [Suspect]
     Indication: CONVULSION
     Dosage: 800 MG, DAILY
     Route: 048
     Dates: start: 20100616, end: 20100728
  4. DIAZEPAM [Concomitant]
     Indication: CONVULSION
     Dosage: 12 MG, UNK
     Route: 048
     Dates: start: 20100706, end: 20100802
  5. LEVOFLOXACIN [Concomitant]
     Indication: CONJUNCTIVITIS
     Dosage: 4 GTT, UNK
     Route: 048
     Dates: start: 20091110, end: 20100529
  6. CEFAZOLIN SODIUM [Concomitant]
     Indication: DIARRHOEA
     Dosage: 3 G, UNK
     Route: 048
     Dates: start: 20091110, end: 20100529
  7. KAMAG G [Concomitant]
     Indication: CONSTIPATION
     Dosage: 2 G, UNK
  8. PHENYTOIN SODIUM CAP [Concomitant]
     Route: 048
  9. VALPROATE SODIUM [Concomitant]
     Indication: CONVULSION
     Dosage: 600 MG, QD
     Dates: start: 20091110, end: 20100529
  10. LASIX [Concomitant]
  11. MUCODYNE [Concomitant]
     Indication: BRONCHITIS
     Dosage: 3 G, QD
     Route: 048
     Dates: start: 20091208, end: 20100529

REACTIONS (20)
  - CONJUNCTIVAL OEDEMA [None]
  - LYMPHADENOPATHY [None]
  - PNEUMONIA STAPHYLOCOCCAL [None]
  - DRUG RASH WITH EOSINOPHILIA AND SYSTEMIC SYMPTOMS [None]
  - ERYTHEMA [None]
  - PYREXIA [None]
  - CYTOMEGALOVIRUS TEST POSITIVE [None]
  - HEPATIC FUNCTION ABNORMAL [None]
  - DIARRHOEA [None]
  - VOMITING [None]
  - LYMPHOCYTE STIMULATION TEST POSITIVE [None]
  - PURPURA [None]
  - HUMAN HERPES VIRUS 6 SEROLOGY POSITIVE [None]
  - RALES [None]
  - GENERALISED ERYTHEMA [None]
  - ECZEMA [None]
  - DRUG ERUPTION [None]
  - RASH [None]
  - DERMATITIS EXFOLIATIVE [None]
  - CONVULSION [None]
